FAERS Safety Report 7213078-7 (Version None)
Quarter: 2010Q4

REPORT INFORMATION
  Report Type: 
  Country: None (occurrence: None)
  Receive Date: 20101229
  Receipt Date: 20101216
  Transmission Date: 20110411
  Serious: Yes (Hospitalization)
  Sender: FDA-Public Use
  Company Number: 023964

PATIENT
  Sex: Male

DRUGS (1)
  1. CERTOLIZUMAB PEGOL (CERTOLIZUMAB PEGOL) [Suspect]
     Dosage: (200 MG, NBR OF DOSES: 02 SUBCUTANEOUS)
     Route: 058
     Dates: start: 20101013, end: 20101216

REACTIONS (12)
  - AORTIC VALVE INCOMPETENCE [None]
  - CAROTID ARTERY STENOSIS [None]
  - CENTRAL NERVOUS SYSTEM LESION [None]
  - LEFT ATRIAL DILATATION [None]
  - LEUKOENCEPHALOPATHY [None]
  - MACULAR HOLE [None]
  - MITRAL VALVE INCOMPETENCE [None]
  - NASAL CONGESTION [None]
  - NASAL SEPTUM DEVIATION [None]
  - RETINAL ARTERY OCCLUSION [None]
  - SCOTOMA [None]
  - VERTEBRAL ARTERY HYPOPLASIA [None]
